FAERS Safety Report 9133638 (Version 2)
Quarter: 2013Q2

REPORT INFORMATION
  Report Type: Spontaneous
  Country: AU (occurrence: AU)
  Receive Date: 20130125
  Receipt Date: 20130420
  Transmission Date: 20140414
  Serious: Yes (Other)
  Sender: FDA-Public Use
  Company Number: AU-B.I. PHARMACEUTICALS,INC./RIDGEFIELD-2013-AU-00041AU

PATIENT
  Sex: Male
  Weight: 69 kg

DRUGS (5)
  1. PRADAXA [Suspect]
     Indication: CEREBROVASCULAR ACCIDENT PROPHYLAXIS
     Dosage: 220 MG
  2. PRADAXA [Suspect]
     Indication: ATRIAL FIBRILLATION
  3. SOLARAZE [Suspect]
     Indication: BASAL CELL CARCINOMA
  4. ATACAND [Concomitant]
  5. ZANIDIP [Concomitant]

REACTIONS (3)
  - Squamous cell carcinoma [Recovered/Resolved]
  - Malignant neoplasm progression [Not Recovered/Not Resolved]
  - Heart rate decreased [Recovered/Resolved]
